FAERS Safety Report 5674048-3 (Version None)
Quarter: 2008Q1

REPORT INFORMATION
  Report Type: 
  Country: None (occurrence: None)
  Receive Date: 20080317
  Receipt Date: 20080311
  Transmission Date: 20080703
  Serious: Yes (Life-Threatening, Hospitalization, Disabling)
  Sender: FDA-Public Use
  Company Number: 18687

PATIENT
  Age: 61 Year
  Sex: Female

DRUGS (7)
  1. METHOTREXATE [Suspect]
     Dates: start: 20080201
  2. REMICADE [Suspect]
     Dates: start: 20080101
  3. ALENDRONIC ACID [Concomitant]
  4. CELECOXIB [Concomitant]
  5. FOLIC ACID [Concomitant]
  6. L-THYROXINE [Concomitant]
  7. TRAMADOL HCL [Concomitant]

REACTIONS (13)
  - CEREBRAL DISORDER [None]
  - CEREBRAL INFARCTION [None]
  - DEPRESSED LEVEL OF CONSCIOUSNESS [None]
  - ENCEPHALITIS [None]
  - INJURY [None]
  - INTRACRANIAL PRESSURE INCREASED [None]
  - NEUROLOGICAL SYMPTOM [None]
  - PURULENCE [None]
  - SEPSIS [None]
  - SINUSITIS [None]
  - STAPHYLOCOCCAL INFECTION [None]
  - STREPTOCOCCAL INFECTION [None]
  - SUBDURAL EMPYEMA [None]
